FAERS Safety Report 8113086-8 (Version None)
Quarter: 2012Q1

REPORT INFORMATION
  Report Type: 
  Country: None (occurrence: None)
  Receive Date: 20120203
  Receipt Date: 20120131
  Transmission Date: 20120608
  Serious: Yes (Death)
  Sender: FDA-Public Use
  Company Number: GR-GLAXOSMITHKLINE-B0779048A

PATIENT
  Age: 45 Year
  Sex: Female

DRUGS (1)
  1. VOTRIENT [Suspect]
     Indication: RENAL CANCER
     Dosage: 800MG UNKNOWN
     Route: 065
     Dates: start: 20111001, end: 20111201

REACTIONS (2)
  - NEOPLASM MALIGNANT [None]
  - CONDITION AGGRAVATED [None]
